FAERS Safety Report 4452929-6 (Version None)
Quarter: 2004Q3

REPORT INFORMATION
  Report Type: 
  Country: None (occurrence: None)
  Receive Date: 20040916
  Receipt Date: 20040903
  Transmission Date: 20050211
  Serious: Yes (Death)
  Sender: FDA-Public Use
  Company Number: 2004-BP-07668RO

PATIENT
  Age: 76 Year
  Sex: Female

DRUGS (1)
  1. DEXAMETHASONE [Suspect]
     Indication: MULTIPLE MYELOMA
     Dosage: 40 MG PER DAY/CYCLE (NR), PO
     Route: 048
     Dates: start: 20011103, end: 20011209

REACTIONS (1)
  - DEATH [None]
